FAERS Safety Report 17189129 (Version 1)
Quarter: 2019Q4

REPORT INFORMATION
  Report Type: Spontaneous
  Country: AU (occurrence: AU)
  Receive Date: 20191223
  Receipt Date: 20191223
  Transmission Date: 20200122
  Serious: Yes (Other)
  Sender: FDA-Public Use
  Company Number: AU-BEH-2019110814

PATIENT
  Age: 47 Year
  Sex: Female

DRUGS (1)
  1. PRIVIGEN [Suspect]
     Active Substance: HUMAN IMMUNOGLOBULIN G
     Indication: PRODUCT USED FOR UNKNOWN INDICATION
     Dosage: 25 GRAM, TOT
     Route: 065
     Dates: start: 20191202, end: 20191202

REACTIONS (2)
  - Alopecia [Unknown]
  - Angioedema [Unknown]

NARRATIVE: CASE EVENT DATE: 20191202
